FAERS Safety Report 24672177 (Version 1)
Quarter: 2024Q4

REPORT INFORMATION
  Report Type: Spontaneous
  Country: US (occurrence: US)
  Receive Date: 20241127
  Receipt Date: 20241127
  Transmission Date: 20250115
  Serious: No
  Sender: SANOFI AVENTIS
  Company Number: US-SA-2024SA343049

PATIENT
  Age: 22 Year
  Sex: Female
  Weight: 58.96 kg

DRUGS (12)
  1. NEXVIAZYME [Suspect]
     Active Substance: AVALGLUCOSIDASE ALFA-NGPT
     Indication: Glycogen storage disease type II
     Dosage: 20 MG/KG, QOW
     Route: 042
     Dates: start: 20220412
  2. EPINEPHRINE [Concomitant]
     Active Substance: EPINEPHRINE
  3. ACETAMINOPHEN [Concomitant]
     Active Substance: ACETAMINOPHEN
  4. WATER FOR INJECTION [Concomitant]
     Active Substance: WATER
  5. BLISOVI FE 1.5/30 [Concomitant]
     Active Substance: ETHINYL ESTRADIOL\NORETHINDRONE ACETATE
  6. SODIUM CHLORIDE [Concomitant]
     Active Substance: SODIUM CHLORIDE
  7. BUSPIRONE HCL [Concomitant]
     Active Substance: BUSPIRONE HYDROCHLORIDE
  8. DEXTROSE [Concomitant]
     Active Substance: DEXTROSE MONOHYDRATE
  9. DIPHENHYDRAMINE HYDROCHLORIDE [Concomitant]
     Active Substance: DIPHENHYDRAMINE HYDROCHLORIDE
  10. IBUPROFEN [Concomitant]
     Active Substance: IBUPROFEN
  11. METHYLPREDNISOLONE [Concomitant]
     Active Substance: METHYLPREDNISOLONE
  12. SOLU-MEDROL [Concomitant]
     Active Substance: METHYLPREDNISOLONE SODIUM SUCCINATE

REACTIONS (2)
  - Dehydration [Unknown]
  - Hangover [Unknown]

NARRATIVE: CASE EVENT DATE: 20241113
